FAERS Safety Report 9062734 (Version 1)
Quarter: 2013Q1

REPORT INFORMATION
  Report Type: Report from Study
  Country: IT (occurrence: IT)
  Receive Date: 20130213
  Receipt Date: 20130213
  Transmission Date: 20140127
  Serious: Yes (Other)
  Sender: FDA-Public Use
  Company Number: IT-PFIZER INC-2013014770

PATIENT
  Age: 60 Year
  Sex: Male

DRUGS (2)
  1. PREGABALIN [Suspect]
     Indication: SIMPLE PARTIAL SEIZURES
     Dosage: 75 MG/DAY
  2. OXCARBAZEPINE [Suspect]
     Indication: SIMPLE PARTIAL SEIZURES
     Dosage: 600 MG/DAY

REACTIONS (2)
  - Eye irritation [Unknown]
  - Dry eye [Unknown]
